FAERS Safety Report 7354807-1 (Version None)
Quarter: 2011Q1

REPORT INFORMATION
  Report Type: 
  Country: None (occurrence: None)
  Receive Date: 20110316
  Receipt Date: 20110119
  Transmission Date: 20110831
  Serious: No
  Sender: FDA-Public Use
  Company Number: US-KINGPHARMUSA00001-K201100080

PATIENT
  Age: 61 Year
  Sex: Male
  Weight: 95.238 kg

DRUGS (6)
  1. ALTACE [Suspect]
     Indication: HYPERTENSION
     Dosage: UNK DAILY
     Route: 048
  2. NIACIN [Concomitant]
     Dosage: UNK
  3. ALTACE [Suspect]
     Dosage: 10 MG, QD
     Route: 048
     Dates: start: 20100801, end: 20110101
  4. SIMVASTATIN [Concomitant]
     Dosage: 20 MG, QD
  5. DILTIAZEM [Concomitant]
     Dosage: 120 MG, TID
  6. PLAVIX [Concomitant]
     Dosage: UNK

REACTIONS (3)
  - SINUS DISORDER [None]
  - PHARYNGEAL OEDEMA [None]
  - COUGH [None]
